FAERS Safety Report 4675211-0 (Version None)
Quarter: 2005Q2

REPORT INFORMATION
  Report Type: 
  Country: None (occurrence: None)
  Receive Date: 20050526
  Receipt Date: 20050523
  Transmission Date: 20051028
  Serious: Yes (Death)
  Sender: FDA-Public Use
  Company Number: TCI2005A01567

PATIENT
  Age: 79 Year
  Sex: Female

DRUGS (7)
  1. LANSOPRAZOLE [Suspect]
     Indication: GASTRIC ULCER
     Dosage: 30 MG (30 MG, 1 IN 1 D)
     Route: 048
     Dates: start: 20050309, end: 20050312
  2. GASMOTIN (MOSAPRIDE CITRATE DEHYDRATE) (TABLETS) [Suspect]
     Indication: VOMITING
     Dosage: 15 MG (5 MG, 3 IN 1 D)
     Route: 048
     Dates: start: 20050307, end: 20050314
  3. CEFMETAZON (CEFMETAZOLE SODIUM) [Concomitant]
  4. LISINOPRIL [Concomitant]
  5. LASIX [Concomitant]
  6. PRIMPERAN TAB [Concomitant]
  7. NOVORAPID (INSULIN ASPART) [Concomitant]

REACTIONS (5)
  - BLOOD CHOLESTEROL INCREASED [None]
  - CARDIAC MASSAGE [None]
  - GASTRIC ULCER [None]
  - NEPHROTIC SYNDROME [None]
  - STEVENS-JOHNSON SYNDROME [None]
